FAERS Safety Report 7080738-0 (Version None)
Quarter: 2010Q4

REPORT INFORMATION
  Report Type: 
  Country: None (occurrence: None)
  Receive Date: 20101103
  Receipt Date: 20101029
  Transmission Date: 20110411
  Serious: Yes (Death, Hospitalization)
  Sender: FDA-Public Use
  Company Number: US-SANOFI-AVENTIS-2010SA066547

PATIENT
  Age: 27 Year
  Sex: Female
  Weight: 70 kg

DRUGS (17)
  1. LOVENOX [Suspect]
     Indication: PULMONARY EMBOLISM
     Route: 058
     Dates: start: 20080216, end: 20080218
  2. HEPARIN [Suspect]
     Indication: PULMONARY EMBOLISM
     Dosage: DOSE:5600 UNIT(S)
     Route: 051
     Dates: start: 20080216, end: 20080216
  3. HEPARIN [Suspect]
     Dosage: DOSE:1250 UNIT(S)
     Route: 051
     Dates: start: 20080216, end: 20080216
  4. DAPTOMYCIN [Concomitant]
  5. PRIMAXIN [Concomitant]
  6. ATENOLOL [Concomitant]
  7. ASPIRIN [Concomitant]
  8. DEXTROSE [Concomitant]
  9. ERTAPENEM [Concomitant]
  10. CIPROFLOXACIN [Concomitant]
  11. HYDROMORPHONE HCL [Concomitant]
  12. PROMETHAZINE [Concomitant]
  13. FERROUS SULFATE [Concomitant]
  14. LEVOFLOXACIN [Concomitant]
  15. METOPROLOL [Concomitant]
  16. PREDNISONE [Concomitant]
  17. ACETAMINOPHEN [Concomitant]

REACTIONS (10)
  - ARRHYTHMIA [None]
  - BRADYCARDIA [None]
  - CARDIAC DISORDER [None]
  - ELECTROMECHANICAL DISSOCIATION [None]
  - MYOCARDITIS [None]
  - PERICARDIAL EFFUSION [None]
  - PLEURAL EFFUSION [None]
  - PULMONARY GRANULOMA [None]
  - STAPHYLOCOCCAL INFECTION [None]
  - TACHYCARDIA [None]
